FAERS Safety Report 4931437-X (Version None)
Quarter: 2006Q1

REPORT INFORMATION
  Report Type: 
  Country: None (occurrence: None)
  Receive Date: 20060228
  Receipt Date: 20060217
  Transmission Date: 20060701
  Serious: Yes (Hospitalization)
  Sender: FDA-Public Use
  Company Number: TRP_0671_2005

PATIENT
  Age: 56 Year
  Sex: Male
  Weight: 122.4712 kg

DRUGS (6)
  1. RIBASPHERE [Suspect]
     Indication: HEPATITIS C
     Dosage: DF UNK PO
     Dates: start: 20050414
  2. PEG-INTRON [Suspect]
     Indication: HEPATITIS C
     Dosage: DF UNK SC
     Route: 058
     Dates: start: 20050414
  3. DARVOCET [Concomitant]
  4. GEMFIBROZIL [Concomitant]
  5. RYNATUSS [Concomitant]
  6. DARVOCET [Concomitant]

REACTIONS (5)
  - CELLULITIS [None]
  - HAEMOGLOBIN DECREASED [None]
  - IRRITABILITY [None]
  - RED BLOOD CELL COUNT DECREASED [None]
  - WHITE BLOOD CELL COUNT DECREASED [None]
